FAERS Safety Report 13724607 (Version 1)
Quarter: 2017Q3

REPORT INFORMATION
  Report Type: Spontaneous
  Country: US (occurrence: US)
  Receive Date: 20170706
  Receipt Date: 20170706
  Transmission Date: 20171127
  Serious: Yes (Hospitalization)
  Sender: FDA-Public Use
  Company Number: US-PFIZER INC-2017290729

PATIENT
  Age: 73 Year
  Sex: Male
  Weight: 68.58 kg

DRUGS (1)
  1. XALKORI [Suspect]
     Active Substance: CRIZOTINIB
     Indication: LUNG CANCER METASTATIC
     Dosage: 250 MG, 2X/DAY (ONCE IN THE MORNING AND ONCE IN THE EVENING)
     Dates: start: 20170504

REACTIONS (4)
  - Feeding disorder [Recovered/Resolved]
  - Malaise [Unknown]
  - Nausea [Recovered/Resolved]
  - Fatigue [Unknown]

NARRATIVE: CASE EVENT DATE: 201706
